FAERS Safety Report 8428336-8 (Version None)
Quarter: 2012Q2

REPORT INFORMATION
  Report Type: 
  Country: None (occurrence: None)
  Receive Date: 20120612
  Receipt Date: 20120607
  Transmission Date: 20120825
  Serious: Yes (Other)
  Sender: FDA-Public Use
  Company Number: US-AMGEN-USASP2012035621

PATIENT
  Sex: Male

DRUGS (2)
  1. LUPRON [Concomitant]
     Dosage: UNK
  2. XGEVA [Suspect]
     Indication: PROPHYLAXIS
     Dates: start: 20120301

REACTIONS (2)
  - NEOPLASM MALIGNANT [None]
  - METASTASES TO BONE MARROW [None]
